FAERS Safety Report 8595878-4 (Version None)
Quarter: 2012Q3

REPORT INFORMATION
  Report Type: 
  Country: None (occurrence: None)
  Receive Date: 20120815
  Receipt Date: 19940420
  Transmission Date: 20120928
  Serious: Yes (Hospitalization, Other)
  Sender: FDA-Public Use
  Company Number: US-ROCHE-1100501

PATIENT
  Age: 54 Year
  Sex: Male

DRUGS (8)
  1. ACTIVASE [Suspect]
     Indication: ACUTE MYOCARDIAL INFARCTION
     Route: 040
  2. ACTIVASE [Suspect]
     Dosage: FOR 30 MIN
  3. HEPARIN [Concomitant]
     Dosage: 1000 UNITS PER HOUR
  4. ACTIVASE [Suspect]
     Dosage: FOR 60 MIN
  5. ASPIRIN [Concomitant]
  6. LOPRESSOR [Concomitant]
     Route: 048
  7. LOPRESSOR [Concomitant]
     Route: 048
  8. MORPHINE [Concomitant]
     Route: 042

REACTIONS (2)
  - HYPOKINESIA [None]
  - ATRIAL FLUTTER [None]
